FAERS Safety Report 5007743-X (Version None)
Quarter: 2006Q2

REPORT INFORMATION
  Report Type: 
  Country: None (occurrence: None)
  Receive Date: 20060522
  Receipt Date: 20060511
  Transmission Date: 20061013
  Serious: Yes (Hospitalization)
  Sender: FDA-Public Use
  Company Number: PHEH2006US06339

PATIENT

DRUGS (1)
  1. FORADIL [Suspect]

REACTIONS (3)
  - HEART RATE INCREASED [None]
  - PAIN [None]
  - TREMOR [None]
